FAERS Safety Report 7344386-7 (Version None)
Quarter: 2011Q1

REPORT INFORMATION
  Report Type: 
  Country: None (occurrence: None)
  Receive Date: 20110310
  Receipt Date: 20110104
  Transmission Date: 20110831
  Serious: No
  Sender: FDA-Public Use
  Company Number: A0902762A

PATIENT
  Age: 64 Year
  Sex: Female

DRUGS (1)
  1. NICORETTE [Suspect]

REACTIONS (5)
  - MOUTH INJURY [None]
  - PAIN IN JAW [None]
  - TOBACCO USER [None]
  - LIP INJURY [None]
  - MUSCLE TIGHTNESS [None]
